FAERS Safety Report 15458915 (Version 1)
Quarter: 2018Q4

REPORT INFORMATION
  Report Type: Spontaneous
  Country: IT (occurrence: IT)
  Receive Date: 20181003
  Receipt Date: 20181003
  Transmission Date: 20190204
  Serious: Yes (Hospitalization)
  Sender: FDA-Public Use
  Company Number: IT-MYLANLABS-2018M1070121

PATIENT
  Age: 67 Year
  Sex: Female

DRUGS (6)
  1. METRONIDAZOLE. [Concomitant]
     Active Substance: METRONIDAZOLE
     Indication: MEDIASTINITIS
  2. SULPHAMETHOXAZOLE/TRIMETHOPRIM [Suspect]
     Active Substance: SULFAMETHOXAZOLE\TRIMETHOPRIM
     Indication: FLAVOBACTERIUM INFECTION
     Route: 065
  3. LEVOFLOXACIN. [Concomitant]
     Active Substance: LEVOFLOXACIN
     Indication: MEDIASTINITIS
  4. METRONIDAZOLE. [Concomitant]
     Active Substance: METRONIDAZOLE
     Indication: FLAVOBACTERIUM INFECTION
     Dosage: UNK
     Route: 065
  5. LEVOFLOXACIN. [Concomitant]
     Active Substance: LEVOFLOXACIN
     Indication: FLAVOBACTERIUM INFECTION
     Route: 065
  6. SULPHAMETHOXAZOLE/TRIMETHOPRIM [Suspect]
     Active Substance: SULFAMETHOXAZOLE\TRIMETHOPRIM
     Indication: MEDIASTINITIS

REACTIONS (1)
  - Drug ineffective [Unknown]
